FAERS Safety Report 6437415-6 (Version None)
Quarter: 2009Q4

REPORT INFORMATION
  Report Type: 
  Country: None (occurrence: None)
  Receive Date: 20091112
  Receipt Date: 20091102
  Transmission Date: 20100525
  Serious: Yes (Other)
  Sender: FDA-Public Use
  Company Number: US-ELI_LILLY_AND_COMPANY-US200910001646

PATIENT
  Age: 79 Year
  Sex: Female

DRUGS (1)
  1. GEMZAR [Suspect]
     Indication: PANCREATIC CARCINOMA METASTATIC
     Dosage: 1500 MG, WEEKLY (1/W)
     Dates: start: 20090319, end: 20091005

REACTIONS (2)
  - MALIGNANT NEOPLASM PROGRESSION [None]
  - PERIORBITAL OEDEMA [None]
